FAERS Safety Report 5536928-9 (Version None)
Quarter: 2007Q4

REPORT INFORMATION
  Report Type: 
  Country: None (occurrence: None)
  Receive Date: 20071207
  Receipt Date: 20071129
  Transmission Date: 20080405
  Serious: Yes (Hospitalization, Other)
  Sender: FDA-Public Use
  Company Number: PHEH2007US11871

PATIENT
  Age: 47 Year
  Sex: Female

DRUGS (3)
  1. TRILEPTAL [Suspect]
     Indication: BIPOLAR DISORDER
     Dosage: 300 MG, TID
     Route: 048
     Dates: start: 20041001, end: 20050301
  2. TRILEPTAL [Suspect]
     Dates: start: 20050301
  3. LAMICTAL [Concomitant]
     Dosage: 250 MG, QD

REACTIONS (7)
  - BLOOD PRESSURE INCREASED [None]
  - DIPLOPIA [None]
  - HEART RATE INCREASED [None]
  - HYPONATRAEMIA [None]
  - MALAISE [None]
  - THYROID DISORDER [None]
  - VISION BLURRED [None]
